FAERS Safety Report 7671937-5 (Version None)
Quarter: 2011Q3

REPORT INFORMATION
  Report Type: 
  Country: None (occurrence: None)
  Receive Date: 20110809
  Receipt Date: 20110801
  Transmission Date: 20111222
  Serious: Yes (Life-Threatening, Hospitalization, Disabling, Other)
  Sender: FDA-Public Use
  Company Number: US-GLAXOSMITHKLINE-A0939287A

PATIENT
  Age: 68 Year
  Sex: Female

DRUGS (1)
  1. TYKERB [Suspect]
     Indication: BREAST CANCER
     Dosage: 1000MG SINGLE DOSE
     Route: 048
     Dates: start: 20110731, end: 20110731

REACTIONS (1)
  - CEREBROVASCULAR ACCIDENT [None]
